FAERS Safety Report 9342823 (Version 1)
Quarter: 2013Q2

REPORT INFORMATION
  Report Type: Spontaneous
  Country: US (occurrence: US)
  Receive Date: 20130611
  Receipt Date: 20130611
  Transmission Date: 20140414
  Serious: Yes (Other)
  Sender: FDA-Public Use
  Company Number: US-PFIZER INC-2013171773

PATIENT
  Age: 47 Year
  Sex: 0

DRUGS (2)
  1. IBUPROFEN [Suspect]
     Dosage: UNK
  2. ALEVE [Suspect]
     Dosage: UNK

REACTIONS (7)
  - Barrett^s oesophagus [Unknown]
  - Hepatic enzyme increased [Unknown]
  - Dyspepsia [Unknown]
  - Pharyngeal inflammation [Unknown]
  - Gastrooesophageal reflux disease [Unknown]
  - Blood pressure increased [Unknown]
  - Pain [Unknown]
